FAERS Safety Report 7509330-8 (Version None)
Quarter: 2011Q2

REPORT INFORMATION
  Report Type: 
  Country: None (occurrence: None)
  Receive Date: 20110527
  Receipt Date: 20110524
  Transmission Date: 20111010
  Serious: Yes (Life-Threatening, Hospitalization, Other)
  Sender: FDA-Public Use
  Company Number: PHHO2011US04447

PATIENT
  Sex: Female
  Weight: 91 kg

DRUGS (16)
  1. CERTICAN [Suspect]
     Dosage: 0.25 MG, BID
     Route: 048
     Dates: start: 20110224, end: 20110224
  2. TRAZODONE HCL [Suspect]
  3. PEPCID [Concomitant]
     Indication: GASTROOESOPHAGEAL REFLUX DISEASE
  4. VALCYTE [Concomitant]
     Indication: ANTIVIRAL PROPHYLAXIS
  5. DULOXETINE HYDROCHLORIDE [Concomitant]
     Indication: NEUROPATHY PERIPHERAL
  6. CERTICAN [Suspect]
     Indication: RENAL TRANSPLANT
     Dosage: 0.75 MG, BID
     Route: 048
     Dates: start: 20110220, end: 20110224
  7. CERTICAN [Suspect]
     Dosage: 0.25 MG, BID
     Route: 048
     Dates: start: 20110227, end: 20110303
  8. TACROLIMUS [Concomitant]
     Dosage: 2 MG, BID
     Route: 048
     Dates: start: 20110304
  9. CERTICAN [Suspect]
     Dosage: 0.75 MG, BID
     Route: 048
     Dates: start: 20110303, end: 20110307
  10. POTASSIUM CHLORIDE [Suspect]
  11. TACROLIMUS [Concomitant]
     Dosage: 3 MG, BID
     Route: 048
     Dates: start: 20110224, end: 20110304
  12. PREDNISONE [Concomitant]
     Indication: RENAL TRANSPLANT
     Dosage: 5 MG, DAILY
     Route: 048
     Dates: start: 20110224
  13. ASPIRIN [Concomitant]
     Indication: CARDIOVASCULAR EVENT PROPHYLAXIS
  14. TACROLIMUS [Concomitant]
     Indication: RENAL TRANSPLANT
     Dosage: 5 MG, BID
     Route: 048
     Dates: start: 20110223, end: 20110224
  15. ZOCOR [Concomitant]
     Indication: HYPERCHOLESTEROLAEMIA
  16. PLAVIX [Concomitant]
     Indication: CARDIOVASCULAR EVENT PROPHYLAXIS

REACTIONS (8)
  - FALL [None]
  - HYPERKALAEMIA [None]
  - DRUG DOSE OMISSION [None]
  - RESPIRATORY DISTRESS [None]
  - TRANSPLANT REJECTION [None]
  - INCORRECT DOSE ADMINISTERED [None]
  - MENTAL STATUS CHANGES [None]
  - ELECTROCARDIOGRAM ABNORMAL [None]
